FAERS Safety Report 20896880 (Version 1)
Quarter: 2022Q2

REPORT INFORMATION
  Report Type: Report from Study
  Country: GB (occurrence: GB)
  Receive Date: 20220531
  Receipt Date: 20220531
  Transmission Date: 20220721
  Serious: Yes (Other)
  Sender: FDA-Public Use
  Company Number: GB-NOVARTISPH-NVSC2022GB035943

PATIENT
  Age: 79 Year
  Sex: Female

DRUGS (10)
  1. LUTATHERA [Suspect]
     Active Substance: LUTETIUM OXODOTREOTIDE LU-177
     Indication: Neuroendocrine tumour of the rectum
     Dosage: 7.4 GBQ (2 DOSES)
     Route: 042
     Dates: start: 2015, end: 2016
  2. LUTATHERA [Suspect]
     Active Substance: LUTETIUM OXODOTREOTIDE LU-177
     Dosage: 7169 MBQ
     Route: 042
     Dates: start: 20151012
  3. LUTATHERA [Suspect]
     Active Substance: LUTETIUM OXODOTREOTIDE LU-177
     Dosage: 7226 MBQ
     Route: 042
     Dates: start: 20151215
  4. LUTATHERA [Suspect]
     Active Substance: LUTETIUM OXODOTREOTIDE LU-177
     Dosage: 7374 MBQ
     Route: 042
     Dates: start: 20160216
  5. LUTATHERA [Suspect]
     Active Substance: LUTETIUM OXODOTREOTIDE LU-177
     Dosage: 7.3 GBQ
     Route: 042
     Dates: start: 20160419
  6. LUTATHERA [Suspect]
     Active Substance: LUTETIUM OXODOTREOTIDE LU-177
     Dosage: UNK (4 CYCLES)
     Route: 042
     Dates: start: 20151012, end: 20160419
  7. LUTATHERA [Suspect]
     Active Substance: LUTETIUM OXODOTREOTIDE LU-177
     Dosage: UNK
     Route: 065
     Dates: start: 20151012, end: 20210102
  8. OCTREOTIDE ACETATE [Suspect]
     Active Substance: OCTREOTIDE ACETATE
     Indication: Neuroendocrine tumour of the rectum
     Dosage: 30 MG, 4W
     Route: 065
     Dates: start: 20150302
  9. OCTREOTIDE ACETATE [Suspect]
     Active Substance: OCTREOTIDE ACETATE
  10. OCTREOTIDE ACETATE [Suspect]
     Active Substance: OCTREOTIDE ACETATE

REACTIONS (7)
  - Neuroendocrine tumour of the rectum [Recovering/Resolving]
  - Malignant neoplasm progression [Recovering/Resolving]
  - Metastases to liver [Unknown]
  - Recurrent cancer [Recovering/Resolving]
  - Peripheral swelling [Unknown]
  - Post procedural swelling [Unknown]
  - Fatigue [Unknown]

NARRATIVE: CASE EVENT DATE: 20150611
